FAERS Safety Report 21683258 (Version 1)
Quarter: 2022Q4

REPORT INFORMATION
  Report Type: Spontaneous
  Country: US (occurrence: None)
  Receive Date: 20221203
  Receipt Date: 20221203
  Transmission Date: 20230113
  Serious: Yes (Other)
  Sender: FDA-Public Use
  Company Number: None

PATIENT
  Age: 64 Year
  Sex: Female
  Weight: 79.65 kg

DRUGS (12)
  1. HYDROCORTISONE [Suspect]
     Active Substance: HYDROCORTISONE
     Indication: Adrenal insufficiency
     Dosage: OTHER QUANTITY : 1 TABLET(S);?FREQUENCY : 4 TIMES A DAY;?
     Route: 048
     Dates: start: 20210101, end: 20221202
  2. Genetropin [Concomitant]
  3. HYDROCORTISONE [Concomitant]
     Active Substance: HYDROCORTISONE
  4. ARMOUR THYROID [Concomitant]
     Active Substance: THYROID, PORCINE
  5. VITAMIN C [Concomitant]
     Active Substance: ASCORBIC ACID
  6. VITAMIN B12 [Concomitant]
     Active Substance: CYANOCOBALAMIN
  7. FOLIC ACID [Concomitant]
     Active Substance: FOLIC ACID
  8. MAGNESIUM [Concomitant]
     Active Substance: MAGNESIUM
  9. NALTREXONE [Concomitant]
     Active Substance: NALTREXONE
  10. probotics [Concomitant]
  11. BIOTIN [Concomitant]
     Active Substance: BIOTIN
  12. PRASTERONE [Concomitant]
     Active Substance: PRASTERONE

REACTIONS (5)
  - Dyspnoea [None]
  - Fatigue [None]
  - Alopecia [None]
  - Hypersomnia [None]
  - Somnolence [None]

NARRATIVE: CASE EVENT DATE: 20221201
